FAERS Safety Report 8064059-5 (Version None)
Quarter: 2011Q4

REPORT INFORMATION
  Report Type: 
  Country: None (occurrence: None)
  Receive Date: 20111221
  Receipt Date: 20110721
  Transmission Date: 20120403
  Serious: Yes (Other)
  Sender: FDA-Public Use
  Company Number: 2011S1000050

PATIENT
  Age: 38 Year
  Sex: Male

DRUGS (7)
  1. SOLU-MEDROL [Concomitant]
  2. ALLEGRA [Concomitant]
  3. COLCRYS [Concomitant]
  4. KRYSTEXXA [Suspect]
     Indication: GOUT
     Dosage: 8 MG;  IV
     Route: 042
     Dates: start: 20110609, end: 20110609
  5. KRYSTEXXA [Suspect]
     Indication: GOUT
     Dosage: 8 MG;  IV
     Route: 042
     Dates: start: 20110708, end: 20110708
  6. KRYSTEXXA [Suspect]
     Indication: GOUT
     Dosage: 8 MG;  IV
     Route: 042
     Dates: start: 20110623, end: 20110623
  7. TYLENOL (CAPLET) [Concomitant]

REACTIONS (4)
  - GOUT [None]
  - INFUSION RELATED REACTION [None]
  - NAUSEA [None]
  - THERAPEUTIC RESPONSE DECREASED [None]
